FAERS Safety Report 8956703 (Version 1)
Quarter: 2012Q4

REPORT INFORMATION
  Report Type: Spontaneous
  Country: FR (occurrence: None)
  Receive Date: 20121128
  Receipt Date: 20121128
  Transmission Date: 20130627
  Serious: Yes (Death, Life-Threatening)
  Sender: FDA-Public Use
  Company Number: 2012-1372

PATIENT

DRUGS (3)
  1. CARFILZOMIB [Suspect]
     Indication: MULTIPLE MYELOMA
     Dates: start: 20120828, end: 20120829
  2. MELPHALAN (MELPHALAN) [Suspect]
     Indication: MULTIPLE MYELOMA
     Dates: start: 20120828, end: 20120829
  3. PREDNISONE (PREDNISONE) [Suspect]
     Indication: MULTIPLE MYELOMA
     Dates: start: 20120828, end: 20120829

REACTIONS (1)
  - Cardio-respiratory distress [None]
